FAERS Safety Report 22890105 (Version 5)
Quarter: 2024Q4

REPORT INFORMATION
  Report Type: Spontaneous
  Country: JP (occurrence: JP)
  Receive Date: 20230831
  Receipt Date: 20241028
  Transmission Date: 20250115
  Serious: Yes (Hospitalization, Other)
  Sender: PFIZER
  Company Number: JP-PFIZER INC-PV202300147175

PATIENT
  Age: 50 Year
  Sex: Female
  Weight: 47.5 kg

DRUGS (3)
  1. XALKORI [Suspect]
     Active Substance: CRIZOTINIB
     Indication: Lung neoplasm malignant
     Dosage: 250 MG, 2X/DAY
     Route: 048
     Dates: start: 20201022, end: 20230826
  2. DEPROMEL [FLUVOXAMINE MALEATE] [Concomitant]
     Indication: Autonomic nervous system imbalance
     Dosage: 25 MG, 3X/DAY
     Route: 048
     Dates: start: 2008
  3. SOLANAX [Concomitant]
     Active Substance: ALPRAZOLAM
     Indication: Autonomic nervous system imbalance
     Dosage: 0.4 MG, 3X/DAY
     Route: 048
     Dates: start: 2008

REACTIONS (5)
  - Renal abscess [Recovered/Resolved]
  - Postoperative ileus [Recovered/Resolved]
  - Renal cyst [Recovered/Resolved]
  - COVID-19 [Unknown]
  - Neoplasm progression [Recovered/Resolved]

NARRATIVE: CASE EVENT DATE: 20220428
